FAERS Safety Report 5243345-8 (Version None)
Quarter: 2007Q1

REPORT INFORMATION
  Report Type: 
  Country: None (occurrence: None)
  Receive Date: 20061201
  Receipt Date: 20060817
  Transmission Date: 20070707
  Serious: No
  Sender: FDA-Public Use
  Company Number: 2006PV009405

PATIENT
  Age: 62 Year
  Sex: Female
  Weight: 80.7403 kg

DRUGS (11)
  1. BYETTA [Suspect]
     Indication: DIABETES MELLITUS NON-INSULIN-DEPENDENT
     Dosage: SEE IMAGE
     Route: 058
     Dates: start: 20060227, end: 20060101
  2. BYETTA [Suspect]
     Indication: DIABETES MELLITUS NON-INSULIN-DEPENDENT
     Dosage: SEE IMAGE
     Route: 058
     Dates: start: 20060323, end: 20060801
  3. BYETTA [Suspect]
     Indication: DIABETES MELLITUS NON-INSULIN-DEPENDENT
     Dosage: SEE IMAGE
     Route: 058
     Dates: start: 20060801, end: 20060801
  4. BYETTA [Suspect]
  5. GLYNASE [Concomitant]
  6. AVANDIA [Concomitant]
  7. GLYBURIDE [Concomitant]
  8. ORTHOVISC [Concomitant]
  9. STEROID [Concomitant]
  10. ZOCOR [Concomitant]
  11. ZOLOFT [Concomitant]

REACTIONS (13)
  - BLOOD GLUCOSE DECREASED [None]
  - BLOOD GLUCOSE FLUCTUATION [None]
  - BLOOD GLUCOSE INCREASED [None]
  - CONDITION AGGRAVATED [None]
  - DECREASED APPETITE [None]
  - DIZZINESS [None]
  - DYSGEUSIA [None]
  - FEELING HOT [None]
  - HOT FLUSH [None]
  - HYPERHIDROSIS [None]
  - MUSCLE SPASMS [None]
  - NAUSEA [None]
  - WEIGHT DECREASED [None]
